FAERS Safety Report 5930331-5 (Version None)
Quarter: 2008Q4

REPORT INFORMATION
  Report Type: 
  Country: None (occurrence: None)
  Receive Date: 20081024
  Receipt Date: 20081017
  Transmission Date: 20090506
  Serious: Yes (Hospitalization)
  Sender: FDA-Public Use
  Company Number: US-GENENTECH-270105

PATIENT
  Sex: Female
  Weight: 64.399 kg

DRUGS (12)
  1. BEVACIZUMAB [Suspect]
     Indication: NON-SMALL CELL LUNG CANCER
     Dosage: 680 MG, UNK
     Route: 042
  2. XANAX [Concomitant]
     Indication: ANXIETY
     Dosage: 25 MG, PRN
  3. LORTAB [Concomitant]
     Indication: PAIN
     Dosage: 5 MG, PRN
     Route: 048
  4. PROTONIX [Concomitant]
     Indication: DRUG USE FOR UNKNOWN INDICATION
     Dosage: 40 MG, QD
     Route: 048
  5. LEVAQUIN [Concomitant]
     Indication: PNEUMONIA
     Dosage: 500 MG, QD
  6. PERCOCET [Concomitant]
     Indication: PAIN
     Dosage: 25 MG, PRN
     Route: 048
  7. PHENERGAN HCL [Concomitant]
     Indication: NAUSEA
     Dosage: 25 MG, PRN
     Route: 048
  8. ZOFRAN [Concomitant]
     Indication: NAUSEA
     Dosage: 8 MG, Q8H
     Route: 048
  9. OXYCONTIN [Concomitant]
     Indication: PAIN
     Dosage: 10 MG, Q12H
     Route: 048
  10. K-DUR [Concomitant]
     Indication: DRUG USE FOR UNKNOWN INDICATION
     Dosage: 20 MG, BID
     Route: 048
  11. ALIMTA [Suspect]
     Indication: NON-SMALL CELL LUNG CANCER
     Dosage: 545 MG, UNK
     Route: 042
  12. GEMZAR [Suspect]
     Indication: NON-SMALL CELL LUNG CANCER
     Dosage: 535 MG, UNK
     Route: 042

REACTIONS (1)
  - GASTROENTERITIS [None]
